FAERS Safety Report 10824782 (Version 2)
Quarter: 2015Q1

REPORT INFORMATION
  Report Type: Spontaneous
  Country: US (occurrence: US)
  Receive Date: 20150219
  Receipt Date: 20150319
  Transmission Date: 20150721
  Serious: Yes (Other)
  Sender: FDA-Public Use
  Company Number: US-ASTRAZENECA-2015SE14753

PATIENT
  Age: 826 Month
  Sex: Male
  Weight: 118.4 kg

DRUGS (12)
  1. BYETTA [Suspect]
     Active Substance: EXENATIDE
     Indication: TYPE 2 DIABETES MELLITUS
     Route: 065
     Dates: start: 20100107
  2. SIMVASTATIN. [Concomitant]
     Active Substance: SIMVASTATIN
     Dates: start: 20070417
  3. OXALIPLATIN. [Concomitant]
     Active Substance: OXALIPLATIN
  4. BYETTA [Suspect]
     Active Substance: EXENATIDE
     Indication: TYPE 2 DIABETES MELLITUS
     Dosage: 10 MCG/0.04ML
     Route: 065
     Dates: end: 20130514
  5. METFORMIN [Concomitant]
     Active Substance: METFORMIN HYDROCHLORIDE
  6. LEUCOVORIN [Concomitant]
     Active Substance: LEUCOVORIN
  7. OXYCODONE [Concomitant]
     Active Substance: OXYCODONE
  8. DIGITEK [Concomitant]
     Active Substance: DIGOXIN
  9. ATENOLOL. [Concomitant]
     Active Substance: ATENOLOL
  10. ONDANSETRON [Concomitant]
     Active Substance: ONDANSETRON
  11. FOLFOX [Concomitant]
     Active Substance: FLUOROURACIL\LEUCOVORIN CALCIUM\OXALIPLATIN
  12. BYETTA [Suspect]
     Active Substance: EXENATIDE
     Indication: TYPE 2 DIABETES MELLITUS
     Route: 065
     Dates: start: 201001, end: 201305

REACTIONS (5)
  - Pancreatic carcinoma [Unknown]
  - Metastases to liver [Unknown]
  - Pancreatic neuroendocrine tumour metastatic [Unknown]
  - Neuroendocrine carcinoma [Unknown]
  - Metastases to bone [Unknown]

NARRATIVE: CASE EVENT DATE: 201309
